FAERS Safety Report 4312795-6 (Version None)
Quarter: 2004Q1

REPORT INFORMATION
  Report Type: 
  Country: None (occurrence: None)
  Receive Date: 20040304
  Receipt Date: 20040226
  Transmission Date: 20041129
  Serious: Yes (Life-Threatening, Hospitalization)
  Sender: FDA-Public Use
  Company Number: 2004201210DE

PATIENT
  Age: 61 Year
  Sex: Male

DRUGS (12)
  1. ZYVOX [Suspect]
     Indication: STAPHYLOCOCCAL INFECTION
     Dosage: 1200 MG, DAILY, ORAL
     Route: 048
     Dates: start: 20040211, end: 20040224
  2. PANTOZOL (PANTOPRAZOLE SODIUM) [Concomitant]
  3. BIFITERAL [Concomitant]
  4. ESPUMISAN [Concomitant]
  5. VITAMINE C [Concomitant]
  6. PREDNISOLONE [Concomitant]
  7. FOLIC ACID [Concomitant]
  8. SINUPRET (PRIMULA FLOWERS, SAMBUCUS FLOWERS, RUMICIS ASETOSA, VERBENA [Concomitant]
  9. DURAGESIC [Concomitant]
  10. CLEXANE (HEPARIN-FRACTION, SODIUM SALT) [Concomitant]
  11. FLOXAL EYEDROPS (OFLOXACIN0 [Concomitant]
  12. PANTHENOL (PANTHENOL) [Concomitant]

REACTIONS (1)
  - RENAL FAILURE ACUTE [None]
